FAERS Safety Report 18156953 (Version 1)
Quarter: 2020Q3

REPORT INFORMATION
  Report Type: Spontaneous
  Country: US (occurrence: US)
  Receive Date: 20200817
  Receipt Date: 20200817
  Transmission Date: 20201103
  Serious: No
  Sender: FDA-Public Use
  Company Number: None

PATIENT
  Age: 83 Year
  Sex: Female

DRUGS (10)
  1. IMATINIB. [Suspect]
     Active Substance: IMATINIB MESYLATE
     Indication: CHRONIC MYELOID LEUKAEMIA
     Route: 048
     Dates: start: 20200724
  2. ONDANSETRON 4MG [Concomitant]
     Active Substance: ONDANSETRON
     Dates: start: 20200723
  3. PROMETHAZINE 12.5MG [Concomitant]
     Dates: start: 20200807
  4. B?1 100MG [Concomitant]
     Dates: start: 20200813
  5. MIRTAZEPINE 15MG [Concomitant]
     Dates: start: 20200812
  6. FOLIC ACID 1MG [Concomitant]
     Active Substance: FOLIC ACID
     Dates: start: 20200813
  7. NUEDEXTA [Concomitant]
     Active Substance: DEXTROMETHORPHAN HYDROBROMIDE\QUINIDINE SULFATE
     Dates: start: 20200814
  8. LISINOPRIL/HCTZ 20?12.5 [Concomitant]
     Active Substance: HYDROCHLOROTHIAZIDE\LISINOPRIL
     Dates: start: 20191110
  9. GLIMEPIRIDE 1MG [Concomitant]
     Active Substance: GLIMEPIRIDE
     Dates: start: 20190125
  10. FUROSEMIDE 20MG [Concomitant]
     Active Substance: FUROSEMIDE
     Dates: start: 20190823

REACTIONS (2)
  - Nausea [None]
  - Dysgeusia [None]

NARRATIVE: CASE EVENT DATE: 20200817
